FAERS Safety Report 17455737 (Version 1)
Quarter: 2020Q1

REPORT INFORMATION
  Report Type: Spontaneous
  Country: US (occurrence: US)
  Receive Date: 20200225
  Receipt Date: 20200225
  Transmission Date: 20200409
  Serious: Yes (Other)
  Sender: FDA-Public Use
  Company Number: None

PATIENT
  Sex: Female

DRUGS (1)
  1. ESTRADIOL VAGINAL [Suspect]
     Active Substance: ESTRADIOL
     Indication: PRODUCT USED FOR UNKNOWN INDICATION
     Dosage: ?          OTHER FREQUENCY:3 TIMES WEEKLY;?
     Route: 067
     Dates: start: 20131231

REACTIONS (4)
  - Urinary tract infection [None]
  - Infection [None]
  - Drug ineffective [None]
  - Product solubility abnormal [None]
